FAERS Safety Report 4524641-6 (Version None)
Quarter: 2004Q4

REPORT INFORMATION
  Report Type: 
  Country: None (occurrence: None)
  Receive Date: 20041117
  Receipt Date: 20030808
  Transmission Date: 20050328
  Serious: No
  Sender: FDA-Public Use
  Company Number: C2003-2141.01

PATIENT
  Age: 41 Year
  Sex: Male

DRUGS (11)
  1. CLOZAPINE [Suspect]
     Indication: SCHIZOPHRENIA
     Dosage: 12.5MG Q PM, THEN 25MG QD, THEN 37.5MG Q PM, THEN50MG Q PM, THEN 62.5MG Q PM, THEN 75MG Q PM, THEN 1
     Route: 048
     Dates: start: 20030713, end: 20030715
  2. CLOZAPINE [Suspect]
     Indication: SCHIZOPHRENIA
     Dosage: 12.5MG Q PM, THEN 25MG QD, THEN 37.5MG Q PM, THEN50MG Q PM, THEN 62.5MG Q PM, THEN 75MG Q PM, THEN 1
     Route: 048
     Dates: start: 20030717, end: 20030806
  3. CLOZAPINE [Suspect]
     Indication: SCHIZOPHRENIA
     Dosage: 12.5MG Q PM, THEN 25MG QD, THEN 37.5MG Q PM, THEN50MG Q PM, THEN 62.5MG Q PM, THEN 75MG Q PM, THEN 1
     Route: 048
     Dates: start: 20030814
  4. ALBUTEROL [Concomitant]
  5. DIVALPROEX SODIUM DR [Concomitant]
  6. LORAZEPAM [Concomitant]
  7. OMEPRAZOLE [Concomitant]
  8. TRAZODONE HCL [Concomitant]
  9. PAROXETINE [Concomitant]
  10. HALOPERIDOL [Concomitant]
  11. BENZTROPINE MESYLATE [Concomitant]

REACTIONS (1)
  - NEUTROPENIA [None]
